FAERS Safety Report 4962393-6 (Version None)
Quarter: 2006Q1

REPORT INFORMATION
  Report Type: 
  Country: None (occurrence: None)
  Receive Date: 20060329
  Receipt Date: 20060320
  Transmission Date: 20060701
  Serious: Yes (Death)
  Sender: FDA-Public Use
  Company Number: 2005S1007579

PATIENT
  Age: 75 Year
  Sex: Male

DRUGS (2)
  1. FENTANYL TRANSDERMAL SYSTEM [Suspect]
     Indication: PROSTATE CANCER METASTATIC
     Dosage: 50 MCG/HR; Q3D; TDER
     Route: 062
     Dates: start: 20050802
  2. PARACETAMOL/HYDROCODONE BITARTRATE [Concomitant]

REACTIONS (1)
  - DRUG EFFECT DECREASED [None]
